FAERS Safety Report 21652870 (Version 1)
Quarter: 2022Q4

REPORT INFORMATION
  Report Type: Spontaneous
  Country: NL (occurrence: NL)
  Receive Date: 20221128
  Receipt Date: 20221128
  Transmission Date: 20230113
  Serious: Yes (Other)
  Sender: FDA-Public Use
  Company Number: None

PATIENT
  Sex: Female
  Weight: 80 kg

DRUGS (2)
  1. ESCITALOPRAM [Suspect]
     Active Substance: ESCITALOPRAM OXALATE
     Indication: Depression
     Dosage: 5 MILLIGRAM, QD (1X 5MG)
     Route: 065
     Dates: start: 20221012, end: 20221013
  2. ESCITALOPRAM [Suspect]
     Active Substance: ESCITALOPRAM OXALATE
     Indication: Anxiety

REACTIONS (5)
  - Urinary retention [Recovering/Resolving]
  - Psychomotor hyperactivity [Recovering/Resolving]
  - Hyperkinesia [Recovering/Resolving]
  - Disturbance in attention [Recovering/Resolving]
  - Euphoric mood [Recovered/Resolved]
